FAERS Safety Report 5323644-1 (Version None)
Quarter: 2007Q2

REPORT INFORMATION
  Report Type: 
  Country: None (occurrence: None)
  Receive Date: 20070510
  Receipt Date: 20070510
  Transmission Date: 20071010
  Serious: Yes (Hospitalization)
  Sender: FDA-Public Use
  Company Number: None

PATIENT
  Age: 81 Year
  Sex: Female

DRUGS (1)
  1. FOSAMAX [Suspect]
     Indication: OSTEOPENIA
     Dosage: 70 MCG WEEKLY ORAL
     Route: 048
     Dates: start: 20000101, end: 20050101

REACTIONS (2)
  - CARCINOID TUMOUR OF THE STOMACH [None]
  - DIZZINESS [None]
